FAERS Safety Report 8848892 (Version 1)
Quarter: 2012Q4

REPORT INFORMATION
  Report Type: Spontaneous
  Country: US (occurrence: None)
  Receive Date: 20121017
  Receipt Date: 20121017
  Transmission Date: 20130627
  Serious: No
  Sender: FDA-Public Use
  Company Number: None

PATIENT
  Age: 53 Year
  Sex: Female
  Weight: 80.2 kg

DRUGS (1)
  1. SERTRALINE [Suspect]
     Indication: ANXIETY DISORDER
     Dates: start: 20120608, end: 20120924

REACTIONS (2)
  - Drug ineffective [None]
  - Product substitution issue [None]
